FAERS Safety Report 15271010 (Version 1)
Quarter: 2018Q3

REPORT INFORMATION
  Report Type: Spontaneous
  Country: US (occurrence: US)
  Receive Date: 20180726
  Receipt Date: 20180726
  Transmission Date: 20181010
  Serious: Yes (Life-Threatening, Hospitalization)
  Sender: FDA-Public Use
  Company Number: None

PATIENT
  Age: 66 Year
  Sex: Male
  Weight: 83.91 kg

DRUGS (2)
  1. WARFARIN [Suspect]
     Active Substance: WARFARIN
     Indication: PROPHYLAXIS
     Route: 048
     Dates: start: 20180630
  2. WARFARIN [Suspect]
     Active Substance: WARFARIN
     Indication: THROMBOSIS PROPHYLAXIS
     Route: 048
     Dates: start: 20180630

REACTIONS (7)
  - Haemorrhage [None]
  - Dizziness [None]
  - International normalised ratio increased [None]
  - Dyspnoea [None]
  - Anaemia [None]
  - Chest discomfort [None]
  - Gastric haemorrhage [None]

NARRATIVE: CASE EVENT DATE: 20180110
